FAERS Safety Report 5996240-0 (Version None)
Quarter: 2008Q4

REPORT INFORMATION
  Report Type: 
  Country: None (occurrence: None)
  Receive Date: 20081212
  Receipt Date: 20081009
  Transmission Date: 20090506
  Serious: No
  Sender: FDA-Public Use
  Company Number: US-ABBOTT-08P-163-0481586-00

PATIENT
  Sex: Female
  Weight: 51.302 kg

DRUGS (13)
  1. HUMIRA [Suspect]
     Indication: RHEUMATOID ARTHRITIS
     Route: 058
     Dates: start: 20060101
  2. HUMIRA [Suspect]
     Dosage: HUMIRA SYRINGE
     Route: 058
     Dates: start: 20030601, end: 20060101
  3. PHENOBARBITAL TAB [Concomitant]
     Indication: CONVULSION
     Dosage: 2 TABS 50 MG AND 1 TAB 30 MG
     Route: 048
     Dates: start: 20040101
  4. LEVOTHYROXINE SODIUM [Concomitant]
     Indication: HYPOTHYROIDISM
     Route: 048
     Dates: start: 19820101
  5. LIOTHYRONINE SODIUM [Concomitant]
     Indication: HYPOTHYROIDISM
     Dosage: TAKES 1/2 TAB
     Route: 048
     Dates: start: 20000101
  6. HYDROXYCHLOROQUINE SULFATE [Concomitant]
     Indication: RHEUMATOID ARTHRITIS
     Route: 048
     Dates: start: 20020101
  7. NABUMETONE [Concomitant]
     Indication: ARTHRALGIA
     Dosage: AT BEDTIME
     Route: 048
     Dates: start: 19900101
  8. ONDANSETRON [Concomitant]
     Indication: MIGRAINE
     Dosage: 4-16 MG
     Route: 048
  9. CODEINE SUL TAB [Concomitant]
     Indication: MIGRAINE
     Route: 048
  10. OMEPRAZOLE [Concomitant]
     Indication: GASTROOESOPHAGEAL REFLUX DISEASE
     Route: 048
     Dates: start: 20000101
  11. LANSOPRAZOLE [Concomitant]
     Indication: GASTROOESOPHAGEAL REFLUX DISEASE
     Route: 048
     Dates: start: 19980101
  12. FLUCONAZOLE [Concomitant]
     Indication: CANDIDIASIS
     Route: 048
     Dates: start: 19880101
  13. ATORVASTATIN CALCIUM [Concomitant]
     Indication: BLOOD CHOLESTEROL
     Route: 048
     Dates: start: 20040101

REACTIONS (3)
  - ARTHRALGIA [None]
  - ARTHRITIS [None]
  - RHEUMATOID ARTHRITIS [None]
